FAERS Safety Report 4975104-5 (Version None)
Quarter: 2006Q2

REPORT INFORMATION
  Report Type: 
  Country: None (occurrence: None)
  Receive Date: 20060411
  Receipt Date: 20060331
  Transmission Date: 20061013
  Serious: Yes (Hospitalization)
  Sender: FDA-Public Use
  Company Number: CA-2006-004788

PATIENT
  Age: 49 Year
  Sex: Female

DRUGS (1)
  1. BETASERON [Suspect]
     Indication: MULTIPLE SCLEROSIS
     Dosage: 8 MIU, SUBCUTANEOUS
     Route: 058
     Dates: start: 20060227, end: 20060227

REACTIONS (13)
  - CHEST DISCOMFORT [None]
  - CHILLS [None]
  - CONDITION AGGRAVATED [None]
  - DIZZINESS [None]
  - DYSPNOEA [None]
  - FIBROMYALGIA [None]
  - MIGRAINE [None]
  - NAUSEA [None]
  - PAIN [None]
  - PERIPHERAL COLDNESS [None]
  - POLLAKIURIA [None]
  - RASH [None]
  - THROAT TIGHTNESS [None]
